FAERS Safety Report 5888161-9 (Version None)
Quarter: 2008Q3

REPORT INFORMATION
  Report Type: 
  Country: None (occurrence: None)
  Receive Date: 20080916
  Receipt Date: 20080905
  Transmission Date: 20090109
  Serious: Yes (Hospitalization)
  Sender: FDA-Public Use
  Company Number: 2008BI023136

PATIENT
  Age: 39 Year
  Sex: Female
  Weight: 74.3899 kg

DRUGS (2)
  1. AVONEX [Suspect]
     Indication: MULTIPLE SCLEROSIS
     Dosage: 30 UG;QW;IM
     Route: 030
     Dates: start: 20040814
  2. ZANAFLEX [Concomitant]

REACTIONS (12)
  - ASTHMA [None]
  - CONDITION AGGRAVATED [None]
  - FALL [None]
  - GRAND MAL CONVULSION [None]
  - HAEMATOMA [None]
  - MIGRAINE [None]
  - MUSCULAR WEAKNESS [None]
  - PNEUMONIA [None]
  - SENSORY DISTURBANCE [None]
  - SINUSITIS [None]
  - THERMAL BURN [None]
  - VISUAL ACUITY REDUCED [None]
